FAERS Safety Report 8108539-2 (Version None)
Quarter: 2012Q1

REPORT INFORMATION
  Report Type: 
  Country: None (occurrence: None)
  Receive Date: 20120202
  Receipt Date: 20120127
  Transmission Date: 20120608
  Serious: Yes (Disabling, Other)
  Sender: FDA-Public Use
  Company Number: PHEH2012US002431

PATIENT
  Sex: Male

DRUGS (1)
  1. TRILEPTAL [Suspect]
     Dosage: 300 MG, TID
     Route: 048

REACTIONS (10)
  - LOSS OF CONSCIOUSNESS [None]
  - DRUG WITHDRAWAL CONVULSIONS [None]
  - BEDRIDDEN [None]
  - LIMB INJURY [None]
  - WITHDRAWAL SYNDROME [None]
  - HEAD INJURY [None]
  - ONYCHOMADESIS [None]
  - FALL [None]
  - ABASIA [None]
  - BACK INJURY [None]
